FAERS Safety Report 11592943 (Version 1)
Quarter: 2015Q4

REPORT INFORMATION
  Report Type: Report from Study
  Country: CN (occurrence: CN)
  Receive Date: 20151005
  Receipt Date: 20151005
  Transmission Date: 20160304
  Serious: Yes (Death)
  Sender: FDA-Public Use
  Company Number: CN-BAYER-2015-381450

PATIENT
  Age: 65 Year
  Sex: Male
  Weight: 55 kg

DRUGS (4)
  1. SORAFENIB [Suspect]
     Active Substance: SORAFENIB
     Indication: HEPATOCELLULAR CARCINOMA
     Dosage: 400MG DAILY
     Route: 048
     Dates: start: 20141016
  2. ESSENTIALE [VITAMINS NOS] [Concomitant]
     Indication: HEPATOCELLULAR CARCINOMA
     Dosage: 684 MG DAILY DOSE
     Dates: start: 20150211, end: 20150219
  3. EPIRUBICIN [Concomitant]
     Active Substance: EPIRUBICIN
     Dosage: 30 MG, UNK
  4. PIRARUBICIN [Concomitant]
     Active Substance: PIRARUBICIN
     Dosage: 30 MG, UNK

REACTIONS (1)
  - Hepatic failure [Fatal]

NARRATIVE: CASE EVENT DATE: 20150601
